FAERS Safety Report 5902779-6 (Version None)
Quarter: 2008Q3

REPORT INFORMATION
  Report Type: 
  Country: None (occurrence: None)
  Receive Date: 20080926
  Receipt Date: 20080915
  Transmission Date: 20090109
  Serious: Yes (Hospitalization, Other)
  Sender: FDA-Public Use
  Company Number: 100#08#2008-04707

PATIENT
  Age: 16 Year
  Sex: Female

DRUGS (2)
  1. PHENYTOIN [Suspect]
     Indication: STATUS EPILEPTICUS
     Dosage: LOADING DOSE 20 MG/KG, DOSE INCREASED TO 140 MG/DAY, DOSE INCREAED TO 180 MG/DAY
  2. PHENOBARBITAL TAB [Concomitant]

REACTIONS (9)
  - ABDOMINAL DISTENSION [None]
  - ASPARTATE AMINOTRANSFERASE INCREASED [None]
  - BLOOD CREATINE PHOSPHOKINASE INCREASED [None]
  - BLOOD LACTATE DEHYDROGENASE INCREASED [None]
  - BLOOD PARATHYROID HORMONE INCREASED [None]
  - GASTROINTESTINAL HYPOMOTILITY [None]
  - PORTAL VENOUS GAS [None]
  - PROTEIN TOTAL INCREASED [None]
  - THYROXINE DECREASED [None]
